FAERS Safety Report 8377940-4 (Version None)
Quarter: 2012Q2

REPORT INFORMATION
  Report Type: 
  Country: None (occurrence: None)
  Receive Date: 20120521
  Receipt Date: 20120509
  Transmission Date: 20120825
  Serious: Yes (Other)
  Sender: FDA-Public Use
  Company Number: 2012P1023457

PATIENT
  Age: 13 Year
  Sex: Male
  Weight: 27.2158 kg

DRUGS (9)
  1. CULTURELLE [Concomitant]
  2. ZINC SULFATE [Concomitant]
  3. PREDNISONE TAB [Suspect]
     Indication: TRACHEITIS
     Dosage: 70 MG; QD;PO   20 MG; BID; PO   20 MG; QD; PO
     Route: 048
     Dates: start: 20120422, end: 20120422
  4. PREDNISONE TAB [Suspect]
     Indication: TRACHEITIS
     Dosage: 70 MG; QD;PO   20 MG; BID; PO   20 MG; QD; PO
     Route: 048
     Dates: start: 20120423, end: 20120423
  5. PREDNISONE TAB [Suspect]
     Indication: TRACHEITIS
     Dosage: 70 MG; QD;PO   20 MG; BID; PO   20 MG; QD; PO
     Route: 048
     Dates: start: 20120424, end: 20120424
  6. LEVOTHYROXINE SODIUM [Concomitant]
  7. MULTIPLE VITAMIN [Concomitant]
  8. PRIMROSE OIL [Concomitant]
  9. VITAMIN D [Concomitant]

REACTIONS (7)
  - MIGRAINE [None]
  - MANIA [None]
  - PSYCHOMOTOR HYPERACTIVITY [None]
  - OBSESSIVE-COMPULSIVE DISORDER [None]
  - HALLUCINATION [None]
  - INCORRECT DOSE ADMINISTERED [None]
  - ANXIETY [None]
